FAERS Safety Report 16580546 (Version 1)
Quarter: 2019Q3

REPORT INFORMATION
  Report Type: Spontaneous
  Country: US (occurrence: US)
  Receive Date: 20190716
  Receipt Date: 20190716
  Transmission Date: 20191004
  Serious: Yes (Life-Threatening, Other)
  Sender: FDA-Public Use
  Company Number: US-FRESENIUS KABI-FK201907673

PATIENT
  Age: 70 Year
  Sex: Female

DRUGS (1)
  1. AMIODARONE HCL (MANUFACTURER UNKNOWN) [Suspect]
     Active Substance: AMIODARONE HYDROCHLORIDE
     Indication: ATRIAL FIBRILLATION
     Dosage: UNKNOWN
     Route: 042

REACTIONS (5)
  - Pulmonary arterial hypertension [Unknown]
  - Cardiac arrest [Recovered/Resolved]
  - Right ventricular failure [Recovered/Resolved]
  - Product use in unapproved indication [Unknown]
  - Hyperthyroidism [Recovered/Resolved]
